FAERS Safety Report 7945196-X (Version None)
Quarter: 2011Q4

REPORT INFORMATION
  Report Type: 
  Country: None (occurrence: None)
  Receive Date: 20111129
  Receipt Date: 20101008
  Transmission Date: 20120403
  Serious: No
  Sender: FDA-Public Use
  Company Number: US-GLAXOSMITHKLINE-A0885659A

PATIENT
  Age: 62 Year
  Sex: Female

DRUGS (5)
  1. SINGULAIR [Concomitant]
  2. LISINOPRIL [Concomitant]
  3. FLOVENT [Suspect]
     Indication: ASTHMA
     Dosage: 1PUFF TWICE PER DAY
     Route: 055
     Dates: start: 20100801
  4. PROVENTIL [Concomitant]
  5. NEXIUM [Concomitant]

REACTIONS (1)
  - DYSPNOEA [None]
